FAERS Safety Report 5467848-6 (Version None)
Quarter: 2007Q3

REPORT INFORMATION
  Report Type: 
  Country: None (occurrence: None)
  Receive Date: 20070926
  Receipt Date: 20070918
  Transmission Date: 20080115
  Serious: Yes (Other)
  Sender: FDA-Public Use
  Company Number: CA-ELI_LILLY_AND_COMPANY-CA200707001090

PATIENT
  Sex: Female

DRUGS (3)
  1. OPHTHALMOLOGICALS [Concomitant]
  2. ZYPREXA [Suspect]
     Indication: SCHIZOAFFECTIVE DISORDER
     Dosage: 7.5 MG, EACH EVENING
  3. PHENYLEPHRINE W/TROPICAMIDE [Concomitant]
     Indication: OPHTHALMOLOGICAL EXAMINATION
     Dosage: UNK, UNK
     Route: 047
     Dates: start: 20070619, end: 20070619

REACTIONS (4)
  - BLINDNESS TRANSIENT [None]
  - EYE MOVEMENT DISORDER [None]
  - MYDRIASIS [None]
  - VISUAL DISTURBANCE [None]
